FAERS Safety Report 20714233 (Version 2)
Quarter: 2022Q4

REPORT INFORMATION
  Report Type: Report from Study
  Country: CH (occurrence: CH)
  Receive Date: 20220415
  Receipt Date: 20221201
  Transmission Date: 20230113
  Serious: Yes (Hospitalization, Other)
  Sender: FDA-Public Use
  Company Number: CH-VERTEX PHARMACEUTICALS-2022-005614

PATIENT
  Age: 29 Year
  Sex: Female

DRUGS (1)
  1. TRIKAFTA [Suspect]
     Active Substance: ELEXACAFTOR\IVACAFTOR\TEZACAFTOR
     Indication: Cystic fibrosis
     Dosage: UNK FREQ
     Route: 048
     Dates: start: 202008

REACTIONS (8)
  - Polyhydramnios [Recovered/Resolved]
  - Premature baby [Recovered/Resolved]
  - Threatened labour [Recovered/Resolved]
  - Spontaneous rupture of membranes [Unknown]
  - Iron deficiency anaemia [Unknown]
  - Rhinovirus infection [Unknown]
  - Hypoxia [Recovered/Resolved]
  - Exposure during pregnancy [Unknown]

NARRATIVE: CASE EVENT DATE: 20201201
